FAERS Safety Report 13863315 (Version 2)
Quarter: 2017Q3

REPORT INFORMATION
  Report Type: Report from Study
  Country: US (occurrence: US)
  Receive Date: 20170814
  Receipt Date: 20170825
  Transmission Date: 20171127
  Serious: No
  Sender: FDA-Public Use
  Company Number: US-SUN PHARMACEUTICAL INDUSTRIES LTD-2017US-147500

PATIENT
  Age: 24 Year
  Sex: Female

DRUGS (1)
  1. ABSORICA [Suspect]
     Active Substance: ISOTRETINOIN
     Indication: PRODUCT USED FOR UNKNOWN INDICATION
     Dosage: 20 MG, BID
     Route: 065
     Dates: start: 20170626, end: 20170801

REACTIONS (2)
  - Pregnancy test false positive [Recovered/Resolved]
  - Human chorionic gonadotropin negative [Unknown]

NARRATIVE: CASE EVENT DATE: 20170731
